FAERS Safety Report 21664684 (Version 3)
Quarter: 2023Q1

REPORT INFORMATION
  Report Type: Spontaneous
  Country: GB (occurrence: GB)
  Receive Date: 20221130
  Receipt Date: 20230110
  Transmission Date: 20230417
  Serious: Yes (Hospitalization, Other)
  Sender: FDA-Public Use
  Company Number: GB-MNA-22-000015

PATIENT
  Age: 77 Year
  Sex: Female
  Weight: 66.9 kg

DRUGS (8)
  1. KEYTRUDA [Suspect]
     Active Substance: PEMBROLIZUMAB
     Indication: Mesothelioma
     Dosage: 200 MILLIGRAM
     Route: 042
     Dates: start: 20220405
  2. KEYTRUDA [Suspect]
     Active Substance: PEMBROLIZUMAB
     Dosage: 200 MILLIGRAM, CYCLICAL
     Route: 042
     Dates: start: 20220830
  3. INVESTIGATIONAL PRODUCT [Suspect]
     Active Substance: INVESTIGATIONAL PRODUCT
     Indication: Mesothelioma
     Dosage: 130 MILLIGRAM/SQ. METER, CYCLICAL
     Route: 042
     Dates: start: 20220823
  4. LEVOTHYROXINE [Concomitant]
     Active Substance: LEVOTHYROXINE
     Indication: Hypothyroidism
     Dosage: UNK
     Route: 048
     Dates: start: 20150417
  5. AMITRIPTYLINE [Concomitant]
     Active Substance: AMITRIPTYLINE
     Indication: Pruritus
     Dosage: UNK
     Route: 048
     Dates: start: 20161010
  6. AMITRIPTYLINE [Concomitant]
     Active Substance: AMITRIPTYLINE
     Indication: Pruritus
  7. SALIVIX [Concomitant]
     Indication: Dry mouth
     Dosage: LOZENGE
     Route: 048
     Dates: start: 20220719
  8. SALIVA [Concomitant]
     Indication: Dry mouth
     Dosage: ORTHANA; SPRAY (UNSPECIFIED)
     Route: 048
     Dates: start: 20220719

REACTIONS (7)
  - Diabetes mellitus [Recovered/Resolved]
  - Bedridden [Unknown]
  - Malaise [Unknown]
  - Asthenia [Unknown]
  - Vomiting [Unknown]
  - Dyspnoea [Unknown]
  - Product use in unapproved indication [Unknown]

NARRATIVE: CASE EVENT DATE: 20220405
